FAERS Safety Report 8360184-X (Version None)
Quarter: 2012Q2

REPORT INFORMATION
  Report Type: 
  Country: None (occurrence: None)
  Receive Date: 20120515
  Receipt Date: 20120505
  Transmission Date: 20120825
  Serious: Yes (Other)
  Sender: FDA-Public Use
  Company Number: DE-JNJFOC-20120506397

PATIENT
  Sex: Male
  Weight: 70 kg

DRUGS (18)
  1. RISPERDAL [Suspect]
     Route: 048
  2. PANTOPRAZOLE [Suspect]
     Route: 048
     Dates: start: 20120505, end: 20120505
  3. GABAPENTIN [Suspect]
     Indication: PRODUCT USED FOR UNKNOWN INDICATION
     Route: 048
  4. PANTOPRAZOLE [Suspect]
     Indication: PRODUCT USED FOR UNKNOWN INDICATION
     Route: 048
  5. ASPIRIN [Suspect]
     Indication: PRODUCT USED FOR UNKNOWN INDICATION
     Route: 048
     Dates: start: 20120505, end: 20120505
  6. ASPIRIN [Suspect]
     Route: 048
  7. MIRTAZAPINE [Suspect]
     Route: 048
     Dates: start: 20120505, end: 20120505
  8. PROMETHAZINE HCL [Suspect]
     Route: 048
  9. RISPERDAL [Suspect]
     Indication: PRODUCT USED FOR UNKNOWN INDICATION
     Route: 048
     Dates: start: 20120505, end: 20120505
  10. GABAPENTIN [Suspect]
     Route: 048
     Dates: start: 20120505, end: 20120505
  11. MIRTAZAPINE [Suspect]
     Indication: PRODUCT USED FOR UNKNOWN INDICATION
     Route: 048
  12. DIPYRONE TAB [Suspect]
     Route: 048
     Dates: start: 20120505, end: 20120505
  13. DIPYRONE TAB [Suspect]
     Indication: PRODUCT USED FOR UNKNOWN INDICATION
     Route: 048
  14. VALPROATE SODIUM [Suspect]
     Route: 048
     Dates: start: 20120505, end: 20120505
  15. LORAZEPAM [Suspect]
     Indication: PRODUCT USED FOR UNKNOWN INDICATION
     Route: 048
  16. VALPROATE SODIUM [Suspect]
     Indication: PRODUCT USED FOR UNKNOWN INDICATION
     Route: 048
  17. PROMETHAZINE HCL [Suspect]
     Indication: PRODUCT USED FOR UNKNOWN INDICATION
     Route: 048
     Dates: start: 20120505, end: 20120505
  18. LORAZEPAM [Suspect]
     Route: 048
     Dates: start: 20120505, end: 20120505

REACTIONS (4)
  - INAPPROPRIATE SCHEDULE OF DRUG ADMINISTRATION [None]
  - SOMNOLENCE [None]
  - VERTIGO [None]
  - SUICIDE ATTEMPT [None]
